FAERS Safety Report 5652195-X (Version None)
Quarter: 2008Q1

REPORT INFORMATION
  Report Type: 
  Country: None (occurrence: None)
  Receive Date: 20080131
  Receipt Date: 20071121
  Transmission Date: 20080703
  Serious: No
  Sender: FDA-Public Use
  Company Number: US200711005526

PATIENT
  Age: 64 Year
  Sex: Female
  Weight: 98.9 kg

DRUGS (5)
  1. BYETTA [Suspect]
     Indication: DIABETES MELLITUS
     Dosage: 5 UG, 2/D, SUBCUTANEOUS; 10 UG, 2/D, SUBCUTANEOUS; 10 UG, 3/D, SUBCUTANEOUS
     Route: 058
     Dates: start: 20061226, end: 20070101
  2. BYETTA [Suspect]
     Indication: DIABETES MELLITUS
     Dosage: 5 UG, 2/D, SUBCUTANEOUS; 10 UG, 2/D, SUBCUTANEOUS; 10 UG, 3/D, SUBCUTANEOUS
     Route: 058
     Dates: start: 20070101, end: 20070101
  3. BYETTA [Suspect]
     Indication: DIABETES MELLITUS
     Dosage: 5 UG, 2/D, SUBCUTANEOUS; 10 UG, 2/D, SUBCUTANEOUS; 10 UG, 3/D, SUBCUTANEOUS
     Route: 058
     Dates: start: 20070101
  4. EXENATIDE 10MCG PEN, DISPOSABLE DEVICE (EXENATIDE PEN (10MCG)) PEN,DIS [Concomitant]
  5. EXENATIDE 5MCG PEN, DISPOSABLE DEVICE (EXENATIDE PEN (5MCG)) PEN,DISPO [Concomitant]

REACTIONS (5)
  - DYSGEUSIA [None]
  - INCORRECT DOSE ADMINISTERED [None]
  - INTENTIONAL OVERDOSE [None]
  - NAUSEA [None]
  - WEIGHT DECREASED [None]
